FAERS Safety Report 9707342 (Version 1)
Quarter: 2013Q4

REPORT INFORMATION
  Report Type: Spontaneous
  Country: FI (occurrence: FI)
  Receive Date: 20131125
  Receipt Date: 20131125
  Transmission Date: 20140711
  Serious: Yes (Life-Threatening, Hospitalization)
  Sender: FDA-Public Use
  Company Number: FI-MALLINCKRODT-T201304907

PATIENT
  Age: 46 Year
  Sex: Female

DRUGS (1)
  1. OPTIRAY [Suspect]
     Indication: COMPUTERISED TOMOGRAM
     Dosage: 72 ML, SINGLE
     Route: 042
     Dates: start: 20131106, end: 20131106

REACTIONS (3)
  - Lip swelling [Unknown]
  - Cyanosis [Unknown]
  - Convulsion [Unknown]
